FAERS Safety Report 10034400 (Version 1)
Quarter: 2014Q1

REPORT INFORMATION
  Report Type: Spontaneous
  Country: US (occurrence: None)
  Receive Date: 20140321
  Receipt Date: 20140321
  Transmission Date: 20141002
  Serious: Yes (Hospitalization)
  Sender: FDA-Public Use
  Company Number: 2014P1002234

PATIENT
  Age: 33 Year
  Sex: Male

DRUGS (4)
  1. AMLODIPINE [Suspect]
  2. RIFAPENTINE [Suspect]
     Indication: TUBERCULOSIS
  3. ISONIAZID [Concomitant]
  4. VITAMIN B6 [Concomitant]

REACTIONS (1)
  - Blood pressure increased [None]
